FAERS Safety Report 7704284-3 (Version None)
Quarter: 2011Q3

REPORT INFORMATION
  Report Type: 
  Country: None (occurrence: None)
  Receive Date: 20110823
  Receipt Date: 20110811
  Transmission Date: 20111222
  Serious: Yes (Other)
  Sender: FDA-Public Use
  Company Number: PHHY2011JP72507

PATIENT
  Age: 18 Year
  Sex: Female

DRUGS (7)
  1. TACROLIMUS [Concomitant]
     Dosage: 0.5 MG, QD
  2. PREDNISOLONE [Concomitant]
     Dosage: 2.5 MG, QD
  3. CYCLOSPORINE [Suspect]
     Indication: LIVER TRANSPLANT
  4. TACROLIMUS [Concomitant]
     Dosage: 8.5 NG/ML
  5. TACROLIMUS [Concomitant]
     Dosage: 1.4 NG/ML
  6. PREDNISOLONE [Concomitant]
     Dosage: 10 MG, QD
  7. MYCOPHENOLATE MOFETIL [Concomitant]
     Dosage: 500 MG, QD

REACTIONS (19)
  - BILE DUCT STENOSIS [None]
  - LIVER TRANSPLANT REJECTION [None]
  - LYMPHOCYTIC INFILTRATION [None]
  - HEPATIC FAILURE [None]
  - APOPTOSIS [None]
  - INTERNATIONAL NORMALISED RATIO INCREASED [None]
  - CHOLESTASIS [None]
  - HEPATIC FUNCTION ABNORMAL [None]
  - ASPARTATE AMINOTRANSFERASE INCREASED [None]
  - DIARRHOEA [None]
  - INFLAMMATION [None]
  - ACTIVATED PARTIAL THROMBOPLASTIN TIME PROLONGED [None]
  - BLOOD ALBUMIN INCREASED [None]
  - ENDOTHELIAL DYSFUNCTION [None]
  - PLATELET COUNT DECREASED [None]
  - INTESTINAL VILLI ATROPHY [None]
  - HEPATIC NECROSIS [None]
  - ALANINE AMINOTRANSFERASE INCREASED [None]
  - BLOOD BILIRUBIN UNCONJUGATED [None]
